FAERS Safety Report 7825155-8 (Version None)
Quarter: 2011Q4

REPORT INFORMATION
  Report Type: 
  Country: None (occurrence: None)
  Receive Date: 20111014
  Receipt Date: 20110928
  Transmission Date: 20120403
  Serious: Yes (Hospitalization, Other)
  Sender: FDA-Public Use
  Company Number: THQ2011A05419

PATIENT
  Age: 44 Year
  Sex: Male

DRUGS (7)
  1. PIOGLITAZONE HYDROCHLORIDE AND METFORMIN HYDROCHLORIDE [Suspect]
     Indication: DIABETES MELLITUS
     Dosage: PIOGLITAZONE HYDROCHLORIDE 15 MG/METFORMIN HYDROCHLORIDE 850 MG, 1 IN 1 D, ORAL
     Route: 048
     Dates: start: 20081219, end: 20110818
  2. SERTRALINE HYDROCHLORIDE [Concomitant]
  3. CLOXAZOLAM [Concomitant]
  4. INSULIN GLARGINE [Concomitant]
  5. METFORMIN HCL [Concomitant]
  6. GLIMEPIRIDE [Concomitant]
  7. BUPROPION HYDROCHLORIDE [Concomitant]

REACTIONS (1)
  - BLADDER TRANSITIONAL CELL CARCINOMA [None]
